FAERS Safety Report 25116272 (Version 1)
Quarter: 2025Q1

REPORT INFORMATION
  Report Type: Report from Study
  Country: CA (occurrence: CA)
  Receive Date: 20250325
  Receipt Date: 20250325
  Transmission Date: 20250408
  Serious: Yes (Other)
  Sender: JOHNSON AND JOHNSON
  Company Number: CA-VIIV HEALTHCARE-CA2025AMR032629

PATIENT
  Age: 38 Year
  Sex: Female

DRUGS (3)
  1. RILPIVIRINE [Suspect]
     Active Substance: RILPIVIRINE
     Indication: HIV infection
     Dosage: UNK UNK, Q2M, CABOTEGRAVIR 600MG/3ML
     Route: 030
     Dates: start: 20241007
  2. CABOTEGRAVIR SODIUM [Suspect]
     Active Substance: CABOTEGRAVIR SODIUM
     Indication: HIV infection
     Dosage: UNK UNK, Q2M, CABOTEGRAVIR 600MG/3ML
     Route: 030
     Dates: start: 20241007
  3. LENACAPAVIR [Concomitant]
     Active Substance: LENACAPAVIR
     Indication: Product used for unknown indication

REACTIONS (7)
  - Pseudostroke [Unknown]
  - Hypoaesthesia [Not Recovered/Not Resolved]
  - Dysarthria [Unknown]
  - Headache [Not Recovered/Not Resolved]
  - Menstruation irregular [Unknown]
  - Fatigue [Unknown]
  - Burning sensation [Unknown]

NARRATIVE: CASE EVENT DATE: 20250308
